FAERS Safety Report 7273009-0 (Version None)
Quarter: 2011Q1

REPORT INFORMATION
  Report Type: 
  Country: None (occurrence: None)
  Receive Date: 20110203
  Receipt Date: 20110127
  Transmission Date: 20110831
  Serious: Yes (Other)
  Sender: FDA-Public Use
  Company Number: B0687672A

PATIENT
  Age: 78 Year
  Sex: Male

DRUGS (2)
  1. DERMOVATE [Suspect]
     Route: 061
  2. ANTEBATE [Concomitant]

REACTIONS (1)
  - DIABETES MELLITUS INADEQUATE CONTROL [None]
